FAERS Safety Report 7112206-1 (Version None)
Quarter: 2010Q4

REPORT INFORMATION
  Report Type: 
  Country: None (occurrence: None)
  Receive Date: 20101119
  Receipt Date: 20100405
  Transmission Date: 20110411
  Serious: No
  Sender: FDA-Public Use
  Company Number: A0848557A

PATIENT
  Age: 67 Year
  Sex: Male

DRUGS (11)
  1. AVODART [Suspect]
     Indication: PROSTATE CANCER
     Dosage: 5MG UNKNOWN
     Route: 048
     Dates: start: 20060101
  2. COUMADIN [Concomitant]
  3. CARVEDILOL [Concomitant]
  4. FISH OIL [Concomitant]
  5. SPIRONOLACTONE [Concomitant]
  6. LISINOPRIL [Concomitant]
  7. FAMOTIDINE [Concomitant]
  8. DIGOXIN [Concomitant]
  9. ASPIRIN [Concomitant]
  10. WARFARIN SODIUM [Concomitant]
  11. HYDROCHLOROTHIAZIDE [Concomitant]

REACTIONS (3)
  - DRUG INEFFECTIVE [None]
  - INCORRECT PRODUCT STORAGE [None]
  - PROSTATIC SPECIFIC ANTIGEN INCREASED [None]
